FAERS Safety Report 7632600-X (Version None)
Quarter: 2011Q3

REPORT INFORMATION
  Report Type: 
  Country: None (occurrence: None)
  Receive Date: 20110701
  Receipt Date: 20100430
  Transmission Date: 20111222
  Serious: Yes (Hospitalization)
  Sender: FDA-Public Use
  Company Number: 7003288

PATIENT
  Age: 63 Year
  Sex: Female

DRUGS (1)
  1. REBIF [Suspect]
     Dosage: 44 MCG, SUBCUTANEOUS
     Route: 058
     Dates: start: 20070430, end: 20100423

REACTIONS (4)
  - ASTHENIA [None]
  - PNEUMONIA [None]
  - CYSTITIS [None]
  - BALANCE DISORDER [None]
